FAERS Safety Report 9988784 (Version 2)
Quarter: 2013Q4

REPORT INFORMATION
  Report Type: Spontaneous
  Country: US (occurrence: None)
  Receive Date: 20131017
  Receipt Date: 20131104
  Transmission Date: 20140711
  Serious: Yes (Hospitalization, Other)
  Sender: FDA-Public Use
  Company Number: ADR-2013-01841

PATIENT
  Sex: Male

DRUGS (2)
  1. BACLOFEN [Suspect]
     Indication: PAIN
     Dates: start: 1997, end: 20130613
  2. MORPHINE [Suspect]

REACTIONS (8)
  - Device malfunction [None]
  - Back disorder [None]
  - Abasia [None]
  - Euphoric mood [None]
  - Device dislocation [None]
  - Device malfunction [None]
  - Sedation [None]
  - Muscular weakness [None]
